FAERS Safety Report 4805906-7 (Version None)
Quarter: 2005Q4

REPORT INFORMATION
  Report Type: 
  Country: None (occurrence: None)
  Receive Date: 20051019
  Receipt Date: 20051003
  Transmission Date: 20060501
  Serious: Yes (Other)
  Sender: FDA-Public Use
  Company Number: USA0507102714

PATIENT
  Age: 78 Year
  Sex: Male

DRUGS (4)
  1. CYMBALTA [Suspect]
     Indication: DIABETIC NEUROPATHY
     Dosage: 90 MG DAY
     Dates: start: 20050224, end: 20050704
  2. GLUCOVANCE [Concomitant]
  3. ALTACE [Concomitant]
  4. LIPITOR [Concomitant]

REACTIONS (6)
  - ASTHENIA [None]
  - BLOOD SODIUM DECREASED [None]
  - DELIRIUM [None]
  - LETHARGY [None]
  - POLYDIPSIA [None]
  - SOMNOLENCE [None]
